FAERS Safety Report 25335333 (Version 1)
Quarter: 2025Q2

REPORT INFORMATION
  Report Type: Spontaneous
  Country: KR (occurrence: KR)
  Receive Date: 20250520
  Receipt Date: 20250520
  Transmission Date: 20250717
  Serious: Yes (Death, Life-Threatening)
  Sender: ACCORD
  Company Number: KR-MLMSERVICE-20250502-PI496842-00232-1

PATIENT
  Age: 50 Year
  Sex: Male

DRUGS (5)
  1. MYCOPHENOLATE MOFETIL [Suspect]
     Active Substance: MYCOPHENOLATE MOFETIL
     Indication: Immunosuppressant drug therapy
  2. TACROLIMUS [Suspect]
     Active Substance: TACROLIMUS
     Indication: Immunosuppressant drug therapy
  3. BASILIXIMAB [Suspect]
     Active Substance: BASILIXIMAB
     Indication: Immunosuppressant drug therapy
  4. METHYLPREDNISOLONE [Suspect]
     Active Substance: METHYLPREDNISOLONE
     Indication: Immunosuppressant drug therapy
  5. VORICONAZOLE [Concomitant]
     Active Substance: VORICONAZOLE
     Indication: Prophylaxis

REACTIONS (8)
  - Renal abscess [Fatal]
  - Liver abscess [Fatal]
  - Disseminated aspergillosis [Fatal]
  - Aspergillus infection [Fatal]
  - Colonic abscess [Fatal]
  - Pancreatic abscess [Fatal]
  - Splenic abscess [Fatal]
  - Systemic mycosis [Fatal]
